FAERS Safety Report 5826549-2 (Version None)
Quarter: 2008Q3

REPORT INFORMATION
  Report Type: 
  Country: None (occurrence: None)
  Receive Date: 20080729
  Receipt Date: 20080722
  Transmission Date: 20090109
  Serious: Yes (Hospitalization, Other)
  Sender: FDA-Public Use
  Company Number: US-ELI_LILLY_AND_COMPANY-US200807004444

PATIENT
  Sex: Male

DRUGS (3)
  1. HUMALOG [Suspect]
     Indication: DIABETES MELLITUS
     Dosage: UNK, UNK
  2. HUMULIN R [Suspect]
     Dosage: UNK, UNK
     Dates: start: 19710101
  3. LANTUS [Concomitant]
     Indication: DIABETES MELLITUS

REACTIONS (6)
  - ACUTE GRAFT VERSUS HOST DISEASE IN LIVER [None]
  - BLOOD BILIRUBIN INCREASED [None]
  - BLOOD GLUCOSE INCREASED [None]
  - FLUID RETENTION [None]
  - LEUKAEMIA [None]
  - THERAPEUTIC RESPONSE DELAYED [None]
